FAERS Safety Report 12283116 (Version 1)
Quarter: 2016Q2

REPORT INFORMATION
  Report Type: Spontaneous
  Country: US (occurrence: US)
  Receive Date: 20160419
  Receipt Date: 20160419
  Transmission Date: 20160815
  Serious: No
  Sender: FDA-Public Use
  Company Number: US-ASTRAZENECA-2015SE45012

PATIENT
  Age: 25998 Day
  Sex: Female

DRUGS (2)
  1. BYDUREON [Suspect]
     Active Substance: EXENATIDE
     Indication: TYPE 2 DIABETES MELLITUS
     Route: 058
  2. LIDOCAINE. [Concomitant]
     Active Substance: LIDOCAINE

REACTIONS (2)
  - Injection site pain [Not Recovered/Not Resolved]
  - Device defective [Unknown]

NARRATIVE: CASE EVENT DATE: 20150512
